FAERS Safety Report 4846023-X (Version None)
Quarter: 2005Q4

REPORT INFORMATION
  Report Type: 
  Country: None (occurrence: None)
  Receive Date: 20051130
  Receipt Date: 20051115
  Transmission Date: 20060501
  Serious: Yes (Hospitalization)
  Sender: FDA-Public Use
  Company Number: 012027

PATIENT
  Age: 58 Year
  Sex: Female

DRUGS (19)
  1. PRIALT [Suspect]
     Indication: PAIN
     Dosage: SEE IMAGE
     Route: 037
     Dates: start: 20051018, end: 20051104
  2. PRIALT [Suspect]
     Indication: PAIN
     Dosage: SEE IMAGE
     Route: 037
     Dates: start: 20051104
  3. PRIALT [Suspect]
     Indication: PAIN
     Dosage: SEE IMAGE
     Route: 037
     Dates: start: 20051108
  4. MORPHINE [Concomitant]
  5. BUPIVACAINE [Concomitant]
  6. KETAMINE (KETAMINE) [Concomitant]
  7. DILAUDID [Concomitant]
  8. SOMA [Concomitant]
  9. LIPITOR     /01326101/(ATORVASTATIN) [Concomitant]
  10. DETROL /01350201/(TOLTERODINE) [Concomitant]
  11. LASIX   /00032601/(FUROSEMIDE) [Concomitant]
  12. PANTOPRAZOLE SODIUM [Concomitant]
  13. SUCRALFATE [Concomitant]
  14. TRAZODONE HCL [Concomitant]
  15. MORPHINE [Concomitant]
  16. HYDROCODONE BITARTRATE [Concomitant]
  17. ZELNORM    /01470301/(TEGASEROD) [Concomitant]
  18. FOLIC ACID [Concomitant]
  19. VALIUM                      /0017001/ (DIAZEPAM) [Concomitant]

REACTIONS (16)
  - ACTIVITIES OF DAILY LIVING IMPAIRED [None]
  - ASTHENIA [None]
  - CHILLS [None]
  - CONFUSIONAL STATE [None]
  - DEHYDRATION [None]
  - DIARRHOEA [None]
  - DIFFICULTY IN WALKING [None]
  - FEAR OF FALLING [None]
  - INFLUENZA LIKE ILLNESS [None]
  - MUSCLE TIGHTNESS [None]
  - MYALGIA [None]
  - NAUSEA [None]
  - NERVOUSNESS [None]
  - PAIN [None]
  - URINARY TRACT INFECTION [None]
  - VOMITING [None]
